FAERS Safety Report 8063987-4 (Version None)
Quarter: 2012Q1

REPORT INFORMATION
  Report Type: 
  Country: None (occurrence: None)
  Receive Date: 20120123
  Receipt Date: 20120116
  Transmission Date: 20120608
  Serious: Yes (Hospitalization)
  Sender: FDA-Public Use
  Company Number: PHHY2012BR004675

PATIENT
  Sex: Female

DRUGS (9)
  1. ARTINIZONA [Concomitant]
     Dosage: 1 TABLET 8/8 HOURS
     Route: 048
     Dates: start: 20120114
  2. AMIODARONE HYDROCHLORIDE [Concomitant]
     Dosage: 1 DF, UNK
     Route: 048
     Dates: start: 20120114
  3. NOVOPRAZOL [Concomitant]
     Indication: ABDOMINAL DISCOMFORT
     Dosage: 1 DF, UNK
     Route: 048
  4. NEOSEMID [Concomitant]
     Dosage: 20 MG, UNK
     Dates: start: 20120114
  5. CLONIDINE HYDROCHLORIDE [Concomitant]
     Dosage: 1 DF, UNK
     Route: 048
     Dates: start: 20120114
  6. BENICAR [Concomitant]
     Dosage: 1 DF, UNK
     Route: 048
  7. NIFEDIPINE [Concomitant]
     Dosage: 1 TABLET 8/8 HOURS
     Route: 048
     Dates: start: 20120114
  8. EXELON [Suspect]
     Indication: DEMENTIA ALZHEIMER'S TYPE
     Dosage: 4.6 MG/24 HOURS
     Route: 062
  9. ISOSORBIDE MONONITRATE [Concomitant]
     Dosage: 1 DF, TID
     Route: 048
     Dates: start: 20120114

REACTIONS (5)
  - RECTAL HAEMORRHAGE [None]
  - ASTHMA [None]
  - CARDIO-RESPIRATORY ARREST [None]
  - VAGINAL HAEMORRHAGE [None]
  - ANAEMIA [None]
